FAERS Safety Report 9108953 (Version 2)
Quarter: 2013Q2

REPORT INFORMATION
  Report Type: Spontaneous
  Country: JP (occurrence: JP)
  Receive Date: 20130222
  Receipt Date: 20130423
  Transmission Date: 20140414
  Serious: Yes (Death)
  Sender: FDA-Public Use
  Company Number: JP-009507513-1302JPN010118

PATIENT
  Age: 60 Year
  Sex: Male
  Weight: 57 kg

DRUGS (2)
  1. PEGINTRON [Suspect]
     Indication: HEPATITIS C
     Dosage: UNK UNK, QD
     Route: 058
     Dates: start: 20130117, end: 20130117
  2. REBETOL [Suspect]
     Indication: HEPATITIS C
     Dosage: DAILY DOSE UNKNOWN
     Route: 048

REACTIONS (1)
  - Death [Fatal]
